FAERS Safety Report 13153337 (Version 1)
Quarter: 2017Q1

REPORT INFORMATION
  Report Type: Spontaneous
  Country: US (occurrence: US)
  Receive Date: 20170122
  Receipt Date: 20170122
  Transmission Date: 20170428
  Serious: Yes (Other)
  Sender: FDA-Public Use
  Company Number: None

PATIENT
  Age: 50 Year
  Sex: Female
  Weight: 124.2 kg

DRUGS (16)
  1. SIMVASTATIN. [Concomitant]
     Active Substance: SIMVASTATIN
  2. FUROSEMIDE. [Concomitant]
     Active Substance: FUROSEMIDE
  3. VITAMIN D3 [Concomitant]
     Active Substance: CHOLECALCIFEROL
  4. QUINAPRIL. [Concomitant]
     Active Substance: QUINAPRIL
  5. BIOTIN [Concomitant]
     Active Substance: BIOTIN
  6. TIMOLOL. [Concomitant]
     Active Substance: TIMOLOL
  7. SIMBRINZA [Concomitant]
     Active Substance: BRIMONIDINE TARTRATE\BRINZOLAMIDE
  8. KLOR-CON [Concomitant]
     Active Substance: POTASSIUM CHLORIDE
  9. AMLOPIDINE BESYLATE TABLETS 10 M [Suspect]
     Active Substance: AMLODIPINE BESYLATE
     Indication: HYPERTENSION
     Dosage: ?          QUANTITY:1 TABLET(S);?
     Route: 048
     Dates: start: 20090211
  10. METFORMIN [Concomitant]
     Active Substance: METFORMIN HYDROCHLORIDE
  11. AMLODIPINE [Concomitant]
     Active Substance: AMLODIPINE BESYLATE
  12. GLIPIZIDE. [Concomitant]
     Active Substance: GLIPIZIDE
  13. LATANOPROST. [Concomitant]
     Active Substance: LATANOPROST
  14. PILOCARPINE. [Concomitant]
     Active Substance: PILOCARPINE
  15. JANUVIA [Concomitant]
     Active Substance: SITAGLIPTIN PHOSPHATE
  16. MAGNESIUM [Concomitant]
     Active Substance: MAGNESIUM

REACTIONS (2)
  - Alopecia [None]
  - Sensory disturbance [None]

NARRATIVE: CASE EVENT DATE: 20090212
